FAERS Safety Report 13557561 (Version 1)
Quarter: 2017Q2

REPORT INFORMATION
  Report Type: Spontaneous
  Country: US (occurrence: US)
  Receive Date: 20170517
  Receipt Date: 20170517
  Transmission Date: 20170830
  Serious: Yes (Life-Threatening, Hospitalization, Disabling)
  Sender: FDA-Public Use
  Company Number: None

PATIENT

DRUGS (2)
  1. RISPERDAL [Suspect]
     Active Substance: RISPERIDONE
  2. CELDOX [Suspect]
     Active Substance: UNSPECIFIED INGREDIENT

REACTIONS (5)
  - Heart rate irregular [None]
  - Dyspnoea [None]
  - Social problem [None]
  - Fatigue [None]
  - Sexual dysfunction [None]

NARRATIVE: CASE EVENT DATE: 20120501
